FAERS Safety Report 25361876 (Version 5)
Quarter: 2025Q3

REPORT INFORMATION
  Report Type: Report from Study
  Country: US (occurrence: US)
  Receive Date: 20250527
  Receipt Date: 20250723
  Transmission Date: 20251021
  Serious: Yes (Other)
  Sender: MYLAN
  Company Number: US-MYLANLABS-2025M1043620

PATIENT
  Age: 21 Year
  Sex: Female

DRUGS (12)
  1. AMNESTEEM [Suspect]
     Active Substance: ISOTRETINOIN
     Indication: Product used for unknown indication
     Dosage: 20 MILLIGRAM, BID (TWICE A DAY)
     Route: 065
     Dates: start: 20250301, end: 20250508
  2. AMNESTEEM [Suspect]
     Active Substance: ISOTRETINOIN
     Dosage: 20 MILLIGRAM, BID (TWICE A DAY)
     Dates: start: 20250301, end: 20250508
  3. AMNESTEEM [Suspect]
     Active Substance: ISOTRETINOIN
     Dosage: 20 MILLIGRAM, BID (TWICE A DAY)
     Dates: start: 20250301, end: 20250508
  4. AMNESTEEM [Suspect]
     Active Substance: ISOTRETINOIN
     Dosage: 20 MILLIGRAM, BID (TWICE A DAY)
     Route: 065
     Dates: start: 20250301, end: 20250508
  5. AMNESTEEM [Suspect]
     Active Substance: ISOTRETINOIN
     Dosage: 20 MILLIGRAM, BID (TWICE A DAY)
     Dates: start: 20250325
  6. AMNESTEEM [Suspect]
     Active Substance: ISOTRETINOIN
     Dosage: 20 MILLIGRAM, BID (TWICE A DAY)
     Dates: start: 20250325
  7. AMNESTEEM [Suspect]
     Active Substance: ISOTRETINOIN
     Dosage: 20 MILLIGRAM, BID (TWICE A DAY)
     Route: 065
     Dates: start: 20250325
  8. AMNESTEEM [Suspect]
     Active Substance: ISOTRETINOIN
     Dosage: 20 MILLIGRAM, BID (TWICE A DAY)
     Route: 065
     Dates: start: 20250325
  9. AMNESTEEM [Suspect]
     Active Substance: ISOTRETINOIN
     Dosage: 20 MILLIGRAM, BID (TWICE A DAY)
     Route: 065
     Dates: start: 20250301, end: 20250509
  10. AMNESTEEM [Suspect]
     Active Substance: ISOTRETINOIN
     Dosage: 20 MILLIGRAM, BID (TWICE A DAY)
     Dates: start: 20250301, end: 20250509
  11. AMNESTEEM [Suspect]
     Active Substance: ISOTRETINOIN
     Dosage: 20 MILLIGRAM, BID (TWICE A DAY)
     Dates: start: 20250301, end: 20250509
  12. AMNESTEEM [Suspect]
     Active Substance: ISOTRETINOIN
     Dosage: 20 MILLIGRAM, BID (TWICE A DAY)
     Route: 065
     Dates: start: 20250301, end: 20250509

REACTIONS (2)
  - Maternal exposure during pregnancy [Recovered/Resolved]
  - Abortion induced [Recovered/Resolved]

NARRATIVE: CASE EVENT DATE: 20250509
